FAERS Safety Report 14095334 (Version 7)
Quarter: 2018Q2

REPORT INFORMATION
  Report Type: Report from Study
  Country: US (occurrence: US)
  Receive Date: 20171017
  Receipt Date: 20180501
  Transmission Date: 20180711
  Serious: Yes (Other)
  Sender: FDA-Public Use
  Company Number: US-AMGEN-USASL2017156653

PATIENT
  Age: 62 Year
  Sex: Male

DRUGS (3)
  1. REPATHA [Suspect]
     Active Substance: EVOLOCUMAB
     Indication: BLOOD CHOLESTEROL INCREASED
  2. REPATHA [Suspect]
     Active Substance: EVOLOCUMAB
     Indication: ARTERIOSCLEROSIS CORONARY ARTERY
  3. REPATHA [Suspect]
     Active Substance: EVOLOCUMAB
     Indication: HYPERCHOLESTEROLAEMIA
     Dosage: 140 MG, Q2WK
     Route: 030
     Dates: start: 20161026, end: 20171127

REACTIONS (18)
  - Headache [Recovered/Resolved]
  - Myalgia [Unknown]
  - Nasopharyngitis [Unknown]
  - Polyarthritis [Unknown]
  - Memory impairment [Recovered/Resolved]
  - Neck pain [Unknown]
  - Low density lipoprotein decreased [Recovered/Resolved]
  - Muscle spasms [Unknown]
  - Cough [Unknown]
  - Back pain [Unknown]
  - Abdominal pain [Unknown]
  - Dizziness [Unknown]
  - Diarrhoea [Unknown]
  - Incorrect route of drug administration [Unknown]
  - Dry throat [Unknown]
  - Eye pruritus [Unknown]
  - Weight increased [Unknown]
  - Abdominal discomfort [Recovered/Resolved]

NARRATIVE: CASE EVENT DATE: 20161026
